FAERS Safety Report 6098726-X (Version None)
Quarter: 2009Q1

REPORT INFORMATION
  Report Type: 
  Country: None (occurrence: None)
  Receive Date: 20090302
  Receipt Date: 20090220
  Transmission Date: 20090719
  Serious: Yes (Other)
  Sender: FDA-Public Use
  Company Number: DE-ELI_LILLY_AND_COMPANY-DE200901005113

PATIENT
  Sex: Male

DRUGS (11)
  1. BYETTA [Suspect]
     Indication: TYPE 2 DIABETES MELLITUS
     Dosage: 5 UG, 2/D
     Route: 065
     Dates: start: 20081006
  2. BYETTA [Suspect]
     Dosage: 10 UG, 2/D
     Route: 058
     Dates: start: 20081104, end: 20090113
  3. OMEP [Concomitant]
     Dosage: UNK, UNKNOWN
     Route: 065
  4. SYMBICORT [Concomitant]
     Dosage: UNK, UNKNOWN
     Route: 065
  5. VALORON [Concomitant]
     Dosage: UNK, AS NEEDED
     Route: 065
  6. TIMOHEXAL [Concomitant]
     Dosage: UNK, UNKNOWN
     Route: 065
  7. SIMVASTATIN [Concomitant]
     Dosage: UNK, UNKNOWN
     Route: 065
  8. FUROSEMIDE [Concomitant]
     Dosage: UNK, UNKNOWN
     Route: 065
  9. CARVEDILOL [Concomitant]
     Dosage: UNK, UNKNOWN
     Route: 065
  10. ATACAND [Concomitant]
     Dosage: UNK, UNKNOWN
     Route: 065
  11. IMIGRAN /01044801/ [Concomitant]
     Dosage: UNK, AS NEEDED
     Route: 065

REACTIONS (1)
  - PANCREATITIS [None]
